FAERS Safety Report 21376150 (Version 2)
Quarter: 2022Q4

REPORT INFORMATION
  Report Type: Spontaneous
  Country: CA (occurrence: CA)
  Receive Date: 20220926
  Receipt Date: 20221017
  Transmission Date: 20230113
  Serious: Yes (Hospitalization, Other)
  Sender: FDA-Public Use
  Company Number: CA-PFIZER INC-202201176993

PATIENT
  Age: 67 Year
  Sex: Male

DRUGS (10)
  1. XELJANZ XR [Suspect]
     Active Substance: TOFACITINIB CITRATE
     Indication: Rheumatoid arthritis
     Dosage: 11 MG
     Route: 048
  2. PROLIA [Concomitant]
     Active Substance: DENOSUMAB
     Dosage: 60 MG EVERY 6 MONTHS
     Route: 058
  3. METHOTREXATE [Concomitant]
     Active Substance: METHOTREXATE
     Dosage: 15 MG, WEEKLY
     Route: 048
  4. NALTREXONE [Concomitant]
     Active Substance: NALTREXONE
  5. PREDNISONE [Concomitant]
     Active Substance: PREDNISONE
     Dosage: 2 MG, 2X/DAY
     Route: 048
  6. FOLIC ACID [Concomitant]
     Active Substance: FOLIC ACID
     Indication: Supplementation therapy
     Dosage: 5 MG, 1X/DAY
     Route: 048
  7. FUSIDIC ACID [Concomitant]
     Active Substance: FUSIDIC ACID
  8. TRAMADOL HYDROCHLORIDE [Concomitant]
     Active Substance: TRAMADOL HYDROCHLORIDE
  9. SERTRALINE [Concomitant]
     Active Substance: SERTRALINE HYDROCHLORIDE
  10. DICLOFENAC SODIUM [Concomitant]
     Active Substance: DICLOFENAC SODIUM

REACTIONS (8)
  - Empyema [Unknown]
  - Pleural effusion [Not Recovered/Not Resolved]
  - Gait inability [Unknown]
  - Diverticulitis [Unknown]
  - Skin disorder [Not Recovered/Not Resolved]
  - Joint range of motion decreased [Unknown]
  - Infection [Unknown]
  - Condition aggravated [Unknown]

NARRATIVE: CASE EVENT DATE: 20220101
